FAERS Safety Report 19275708 (Version 1)
Quarter: 2021Q2

REPORT INFORMATION
  Report Type: Report from Study
  Country: US (occurrence: US)
  Receive Date: 20210519
  Receipt Date: 20210519
  Transmission Date: 20210717
  Serious: Yes (Other)
  Sender: FDA-Public Use
  Company Number: US-BAYER-2021-142134

PATIENT
  Sex: Female

DRUGS (5)
  1. ALEVE PM [Concomitant]
     Active Substance: DIPHENHYDRAMINE HYDROCHLORIDE\NAPROXEN SODIUM
  2. ASPIRIN (CARDIO) [Concomitant]
     Active Substance: ASPIRIN
  3. LEVOTHYROXINE. [Concomitant]
     Active Substance: LEVOTHYROXINE
  4. VITRAKVI [Suspect]
     Active Substance: LAROTRECTINIB
     Indication: LUNG NEOPLASM MALIGNANT
     Dosage: 100 MG, BID
     Route: 048
  5. ELIQUIS [Concomitant]
     Active Substance: APIXABAN

REACTIONS (8)
  - Arthralgia [None]
  - Feeling abnormal [None]
  - Hypoaesthesia [None]
  - Neuropathy peripheral [Not Recovered/Not Resolved]
  - Nausea [None]
  - Paraesthesia [None]
  - Lung neoplasm malignant [Not Recovered/Not Resolved]
  - Peripheral coldness [None]
